FAERS Safety Report 8133120-9 (Version None)
Quarter: 2012Q1

REPORT INFORMATION
  Report Type: 
  Country: None (occurrence: None)
  Receive Date: 20120213
  Receipt Date: 20120207
  Transmission Date: 20120608
  Serious: Yes (Hospitalization)
  Sender: FDA-Public Use
  Company Number: PHEH2012US003392

PATIENT
  Sex: Female

DRUGS (1)
  1. EXJADE [Suspect]
     Indication: SICKLE CELL ANAEMIA
     Dosage: 375 MG, DAILY
     Route: 048
     Dates: start: 20110627

REACTIONS (2)
  - SICKLE CELL ANAEMIA WITH CRISIS [None]
  - PHARYNGITIS STREPTOCOCCAL [None]
